FAERS Safety Report 12080019 (Version 2)
Quarter: 2016Q1

REPORT INFORMATION
  Report Type: Spontaneous
  Country: JP (occurrence: JP)
  Receive Date: 20160216
  Receipt Date: 20160218
  Transmission Date: 20160526
  Serious: Yes (Death)
  Sender: FDA-Public Use
  Company Number: JP-PFIZER INC-2016092190

PATIENT
  Age: 55 Year
  Sex: Male

DRUGS (15)
  1. CYTARABINE. [Concomitant]
     Active Substance: CYTARABINE
     Indication: HODGKIN^S DISEASE
     Dosage: 2000 MG/M2, UNK
  2. BRENTUXIMAB VEDOTIN [Concomitant]
     Active Substance: BRENTUXIMAB VEDOTIN
     Indication: HODGKIN^S DISEASE
     Dosage: 1.8 MG/KG, UNK
     Route: 041
  3. DACARBAZINE. [Suspect]
     Active Substance: DACARBAZINE
     Indication: HODGKIN^S DISEASE
     Dosage: 375 MG/M2, CYCLIC (ON DAYS 1 AND 15 IN A 28-DAY CYCLE)
     Route: 042
  4. PREDNISOLONE. [Suspect]
     Active Substance: PREDNISOLONE
     Indication: HODGKIN^S DISEASE
     Dosage: 40 MG/M2, UNK
  5. PROCARBAZINE HCL [Suspect]
     Active Substance: PROCARBAZINE HYDROCHLORIDE
     Indication: HODGKIN^S DISEASE
     Dosage: 100 MG/M2, UNK
  6. METHYLPREDNISOLONE. [Concomitant]
     Active Substance: METHYLPREDNISOLONE
     Indication: HODGKIN^S DISEASE
     Dosage: 500 MG, UNK
     Route: 048
  7. DEXAMETHASONE. [Concomitant]
     Active Substance: DEXAMETHASONE
     Indication: CYTOKINE STORM
     Dosage: 20 MG, UNK
     Route: 048
  8. ETOPOSIDE. [Suspect]
     Active Substance: ETOPOSIDE
     Dosage: 100 MG/M2, UNK
     Route: 042
  9. CISPLATIN. [Concomitant]
     Active Substance: CISPLATIN
     Indication: HODGKIN^S DISEASE
     Dosage: 25 MG/M2, UNK
  10. CYCLOPHOSPHAMIDE. [Suspect]
     Active Substance: CYCLOPHOSPHAMIDE
     Indication: HODGKIN^S DISEASE
     Dosage: 600 MG/M2, UNK
     Route: 042
  11. BLEOMYCIN [Suspect]
     Active Substance: BLEOMYCIN SULFATE
     Indication: HODGKIN^S DISEASE
     Dosage: 10 MG/M2, UNK
  12. VINBLASTINE SULFATE. [Suspect]
     Active Substance: VINBLASTINE SULFATE
     Indication: HODGKIN^S DISEASE
     Dosage: 6 MG/M2, UNK
     Route: 042
  13. ETOPOSIDE. [Suspect]
     Active Substance: ETOPOSIDE
     Indication: HODGKIN^S DISEASE
     Dosage: 40 MG/M2, UNK
     Route: 042
  14. ADRIACIN [Suspect]
     Active Substance: DOXORUBICIN HYDROCHLORIDE
     Indication: HODGKIN^S DISEASE
     Dosage: 25 MG/M2, UNK
     Route: 042
  15. VINCRISTINE SULFATE. [Suspect]
     Active Substance: VINCRISTINE SULFATE
     Indication: HODGKIN^S DISEASE
     Dosage: 2 MG, UNK

REACTIONS (3)
  - Coagulopathy [Fatal]
  - Histiocytosis haematophagic [Fatal]
  - Epstein-Barr virus infection [Unknown]
